FAERS Safety Report 7010743-1 (Version None)
Quarter: 2010Q3

REPORT INFORMATION
  Report Type: 
  Country: None (occurrence: None)
  Receive Date: 20100923
  Receipt Date: 20100917
  Transmission Date: 20110219
  Serious: Yes (Death, Other)
  Sender: FDA-Public Use
  Company Number: US-PFIZER INC-2010086351

PATIENT
  Sex: Male

DRUGS (1)
  1. CHANTIX [Suspect]
     Indication: SMOKING CESSATION THERAPY
     Dosage: UNK
     Dates: start: 20090512, end: 20090602

REACTIONS (5)
  - AGGRESSION [None]
  - AGITATION [None]
  - COMPLETED SUICIDE [None]
  - EMOTIONAL DISORDER [None]
  - PARANOIA [None]
